FAERS Safety Report 4936973-8 (Version None)
Quarter: 2006Q1

REPORT INFORMATION
  Report Type: 
  Country: None (occurrence: None)
  Receive Date: 20060309
  Receipt Date: 20060228
  Transmission Date: 20060701
  Serious: Yes (Hospitalization)
  Sender: FDA-Public Use
  Company Number: AT-ROCHE-438187

PATIENT
  Age: 65 Year
  Sex: Female
  Weight: 69 kg

DRUGS (12)
  1. CAPECITABINE [Suspect]
     Dosage: 2 TIMES PER 1 DAY, FOR 14 DAYS OUT OF EACH 3 WEEK CYCLE
     Route: 048
     Dates: start: 20050909
  2. CAPECITABINE [Suspect]
     Dosage: 2 TIMES PER 1 DAY, FOR 14 DAYS OUT OF EACH 3 WEEK CYCLE
     Route: 048
     Dates: start: 20051223
  3. BEVACIZUMAB [Suspect]
     Route: 042
     Dates: start: 20050909, end: 20060224
  4. OXALIPLATIN [Suspect]
     Route: 042
     Dates: start: 20050909
  5. OXALIPLATIN [Suspect]
     Route: 042
     Dates: start: 20051111
  6. LOSARTAN POTASSIUM [Concomitant]
     Dates: start: 20050901
  7. METFORMIN [Concomitant]
     Dates: start: 20050811
  8. SIMVASTATIN [Concomitant]
     Dates: start: 20050811
  9. PARIET [Concomitant]
     Dates: start: 20050811
  10. CONCOR [Concomitant]
     Dates: start: 20050811
  11. COZAAR [Concomitant]
     Dates: start: 20050811
  12. LOVENOX [Concomitant]
     Dates: start: 20051114

REACTIONS (3)
  - BURNING SENSATION [None]
  - DEEP VEIN THROMBOSIS [None]
  - NECROSIS [None]
